FAERS Safety Report 6940607-0 (Version None)
Quarter: 2010Q3

REPORT INFORMATION
  Report Type: 
  Country: None (occurrence: None)
  Receive Date: 20100825
  Receipt Date: 20100816
  Transmission Date: 20110219
  Serious: Yes (Other)
  Sender: FDA-Public Use
  Company Number: PHHY2010CA14487

PATIENT
  Sex: Female

DRUGS (10)
  1. EXELON [Suspect]
     Indication: DEMENTIA
     Dosage: PATCH 10, DAILY
     Dates: start: 20090918
  2. CRESTOR [Concomitant]
  3. NORVASC [Concomitant]
  4. ACCUPRIL [Concomitant]
  5. METFORMIN [Concomitant]
  6. GLYBURIDE [Concomitant]
  7. RIVASA [Concomitant]
  8. VITAMIN B-12 [Concomitant]
  9. CORTISONE ACETATE [Concomitant]
  10. RISPERDAL [Concomitant]
     Dosage: 5 MG, QHS

REACTIONS (3)
  - CONFUSIONAL STATE [None]
  - RADIOISOTOPE SCAN [None]
  - SKIN REACTION [None]
